FAERS Safety Report 17359164 (Version 2)
Quarter: 2020Q1

REPORT INFORMATION
  Report Type: Spontaneous
  Country: JP (occurrence: JP)
  Receive Date: 20200203
  Receipt Date: 20200223
  Transmission Date: 20200409
  Serious: Yes (Other)
  Sender: FDA-Public Use
  Company Number: JP-AMGEN-JPNCT2020015024

PATIENT

DRUGS (4)
  1. LEUCOVORINE CALCIUM [Suspect]
     Active Substance: LEUCOVORIN CALCIUM
     Indication: COLORECTAL CANCER METASTATIC
     Dosage: UNK UNK, Q2WK
     Route: 065
  2. PANITUMUMAB [Suspect]
     Active Substance: PANITUMUMAB
     Indication: COLORECTAL CANCER METASTATIC
     Dosage: 6 MILLIGRAM/KILOGRAM, Q2WK
     Route: 065
  3. 5-FU [FLUOROURACIL] [Suspect]
     Active Substance: FLUOROURACIL
     Indication: COLORECTAL CANCER METASTATIC
     Dosage: UNK UNK, Q2WK
     Route: 065
  4. IRINOTECAN [Suspect]
     Active Substance: IRINOTECAN
     Indication: COLORECTAL CANCER METASTATIC
     Dosage: UNK UNK, Q2WK
     Route: 065

REACTIONS (20)
  - Vomiting [Unknown]
  - Leukopenia [Unknown]
  - Haemorrhage [Unknown]
  - Pneumonitis [Unknown]
  - Anaemia [Unknown]
  - Infection [Unknown]
  - Febrile neutropenia [Unknown]
  - Diarrhoea [Unknown]
  - Dry skin [Unknown]
  - Neutropenia [Unknown]
  - Proteinuria [Unknown]
  - Decreased appetite [Unknown]
  - Nausea [Unknown]
  - Hypomagnesaemia [Unknown]
  - Dermatitis acneiform [Unknown]
  - Paronychia [Unknown]
  - Thrombocytopenia [Unknown]
  - Stomatitis [Unknown]
  - Embolism [Unknown]
  - Fatigue [Unknown]
